FAERS Safety Report 8809021 (Version 1)
Quarter: 2012Q4

REPORT INFORMATION
  Report Type: Spontaneous
  Country: US (occurrence: None)
  Receive Date: 20120921
  Receipt Date: 20120921
  Transmission Date: 20130627
  Serious: Yes (Other)
  Sender: FDA-Public Use
  Company Number: None

PATIENT
  Age: 68 Year
  Sex: Female
  Weight: 65.9 kg

DRUGS (1)
  1. CRESTOR [Suspect]
     Dosage: 2.5 mg daily
     Dates: start: 201004

REACTIONS (1)
  - Cartilage atrophy [None]
